FAERS Safety Report 25638015 (Version 1)
Quarter: 2025Q3

REPORT INFORMATION
  Report Type: Spontaneous
  Country: GB (occurrence: GB)
  Receive Date: 20250804
  Receipt Date: 20250804
  Transmission Date: 20251021
  Serious: Yes (Hospitalization)
  Sender: MYLAN
  Company Number: GB-MYLANLABS-2025M1064070

PATIENT
  Age: 47 Year
  Sex: Female

DRUGS (12)
  1. TRETINOIN [Suspect]
     Active Substance: TRETINOIN
     Indication: Acute promyelocytic leukaemia
  2. TRETINOIN [Suspect]
     Active Substance: TRETINOIN
     Route: 065
  3. TRETINOIN [Suspect]
     Active Substance: TRETINOIN
     Route: 065
  4. TRETINOIN [Suspect]
     Active Substance: TRETINOIN
  5. METOPROLOL [Concomitant]
     Active Substance: METOPROLOL
     Indication: Palpitations
  6. METOPROLOL [Concomitant]
     Active Substance: METOPROLOL
     Route: 065
  7. METOPROLOL [Concomitant]
     Active Substance: METOPROLOL
     Route: 065
  8. METOPROLOL [Concomitant]
     Active Substance: METOPROLOL
  9. CITALOPRAM [Concomitant]
     Active Substance: CITALOPRAM
     Indication: Depression
  10. CITALOPRAM [Concomitant]
     Active Substance: CITALOPRAM
     Route: 065
  11. CITALOPRAM [Concomitant]
     Active Substance: CITALOPRAM
     Route: 065
  12. CITALOPRAM [Concomitant]
     Active Substance: CITALOPRAM

REACTIONS (6)
  - Intracranial pressure increased [Recovered/Resolved]
  - Visual acuity reduced [Recovered/Resolved]
  - Optic disc haemorrhage [Recovered/Resolved]
  - Papilloedema [Recovered/Resolved]
  - Terson syndrome [Unknown]
  - Off label use [Unknown]
